FAERS Safety Report 4436167-9 (Version None)
Quarter: 2004Q3

REPORT INFORMATION
  Report Type: 
  Country: None (occurrence: None)
  Receive Date: 20040830
  Receipt Date: 20040429
  Transmission Date: 20050211
  Serious: Yes (Other)
  Sender: FDA-Public Use
  Company Number: US-BRISTOL-MYERS SQUIBB COMPANY-12574729

PATIENT
  Age: 54 Year
  Sex: Male
  Weight: 98 kg

DRUGS (2)
  1. ERBITUX [Suspect]
     Indication: COLON CANCER METASTATIC
     Dosage: 5TH DOSE 26-APR-04 (500MG,250 MG/M2),ALSO GIVEN ON 03-MAY-04 500MG,LOT #03C0024
     Route: 042
  2. LIPITOR [Concomitant]

REACTIONS (3)
  - ACNE [None]
  - CHILLS [None]
  - DYSPNOEA [None]
